FAERS Safety Report 8252997-X (Version None)
Quarter: 2012Q2

REPORT INFORMATION
  Report Type: 
  Country: None (occurrence: None)
  Receive Date: 20120402
  Receipt Date: 20120329
  Transmission Date: 20120825
  Serious: Yes (Hospitalization, Disabling, Other)
  Sender: FDA-Public Use
  Company Number: US-MERCK-1106USA00884

PATIENT
  Age: 58 Year
  Sex: Female
  Weight: 64 kg

DRUGS (8)
  1. ASCORBIC ACID [Concomitant]
     Route: 065
     Dates: start: 19800101
  2. CALCIUM (UNSPECIFIED) AND VITAMIN D (UNSPECIFIED) [Concomitant]
     Route: 065
     Dates: start: 19950101
  3. FOSAMAX [Suspect]
     Indication: OSTEOPOROSIS
     Route: 048
     Dates: start: 19951001, end: 20030601
  4. FOSAMAX PLUS D [Suspect]
     Indication: OSTEOPOROSIS
     Route: 048
     Dates: start: 20030601, end: 20040301
  5. ALENDRONATE SODIUM [Suspect]
     Route: 048
     Dates: start: 20090701
  6. FOSAMAX [Suspect]
     Route: 048
     Dates: start: 20051101, end: 20080601
  7. VITAMINS (UNSPECIFIED) [Concomitant]
     Route: 065
     Dates: start: 19800101
  8. ALENDRONATE SODIUM [Suspect]
     Indication: OSTEOPOROSIS
     Route: 048
     Dates: start: 20090301

REACTIONS (43)
  - ATRIAL FIBRILLATION [None]
  - DEVICE FAILURE [None]
  - HYPERCHOLESTEROLAEMIA [None]
  - BACK INJURY [None]
  - DIABETES MELLITUS [None]
  - SPINAL OSTEOARTHRITIS [None]
  - TIBIA FRACTURE [None]
  - OSTEOARTHRITIS [None]
  - ANGIOPATHY [None]
  - PAIN [None]
  - HYPOTHYROIDISM [None]
  - CORONARY ARTERY DISEASE [None]
  - FEMALE STERILISATION [None]
  - ANKLE FRACTURE [None]
  - ASTHENIA [None]
  - HYPERTENSION [None]
  - BIPOLAR I DISORDER [None]
  - DEPRESSION [None]
  - FALL [None]
  - HYPERSENSITIVITY [None]
  - DRUG HYPERSENSITIVITY [None]
  - FEMUR FRACTURE [None]
  - ANAEMIA [None]
  - HAEMORRHOIDS [None]
  - FUNGAL SKIN INFECTION [None]
  - PAIN IN EXTREMITY [None]
  - ASTHMA [None]
  - ARTHRALGIA [None]
  - FIBULA FRACTURE [None]
  - INJURY [None]
  - TRIGGER FINGER [None]
  - ADVERSE EVENT [None]
  - FATIGUE [None]
  - RIB FRACTURE [None]
  - BACK PAIN [None]
  - HYPERLIPIDAEMIA [None]
  - ANXIETY [None]
  - EXOSTOSIS [None]
  - TONSILLAR DISORDER [None]
  - SCAPULA FRACTURE [None]
  - INFECTION [None]
  - HEADACHE [None]
  - BLOOD CHOLESTEROL INCREASED [None]
